FAERS Safety Report 18191115 (Version 1)
Quarter: 2020Q3

REPORT INFORMATION
  Report Type: Other
  Country: None (occurrence: CA)
  Receive Date: 20200824
  Receipt Date: 20200824
  Transmission Date: 20201103
  Serious: Yes (Life-Threatening, Other)
  Sender: FDA-Public Use
  Company Number: CA-HLS-202001141

PATIENT
  Age: 47 Year
  Sex: Male

DRUGS (4)
  1. CLOZAPINE. [Suspect]
     Active Substance: CLOZAPINE
     Indication: THINKING ABNORMAL
     Dosage: 600.0 MILLIGRAM
     Route: 048
  2. OLANZAPINE. [Suspect]
     Active Substance: OLANZAPINE
     Indication: THINKING ABNORMAL
     Dosage: 20.0 MILLIGRAM
     Route: 048
  3. CLOZAPINE. [Suspect]
     Active Substance: CLOZAPINE
     Indication: THINKING ABNORMAL
     Dosage: 600.0 MILLIGRAM
     Route: 048
  4. CLOZAPINE. [Suspect]
     Active Substance: CLOZAPINE
     Indication: THINKING ABNORMAL
     Route: 065

REACTIONS (6)
  - Leukopenia [Unknown]
  - Adverse event [Unknown]
  - Agranulocytosis [Unknown]
  - Product use in unapproved indication [Unknown]
  - White blood cell count decreased [Unknown]
  - Neutrophil count decreased [Unknown]
